FAERS Safety Report 5394375-7 (Version None)
Quarter: 2007Q3

REPORT INFORMATION
  Report Type: 
  Country: None (occurrence: None)
  Receive Date: 20070723
  Receipt Date: 20070625
  Transmission Date: 20080115
  Serious: Yes (Other)
  Sender: FDA-Public Use
  Company Number: US-MERCK-0706USA04823

PATIENT
  Age: 83 Year
  Sex: Female

DRUGS (5)
  1. FOSAMAX [Suspect]
     Indication: BONE DENSITY DECREASED
     Route: 048
     Dates: start: 20030101
  2. CLONIDINE [Concomitant]
     Route: 065
  3. WARFARIN [Concomitant]
     Route: 065
  4. METOPROLOL [Concomitant]
     Route: 065
  5. DIOVAN [Concomitant]
     Route: 065

REACTIONS (6)
  - DIARRHOEA [None]
  - HIP FRACTURE [None]
  - MUSCULOSKELETAL STIFFNESS [None]
  - MYALGIA [None]
  - PRURITUS [None]
  - RASH [None]
